FAERS Safety Report 12210764 (Version 2)
Quarter: 2016Q2

REPORT INFORMATION
  Report Type: Spontaneous
  Country: JP (occurrence: JP)
  Receive Date: 20160325
  Receipt Date: 20160523
  Transmission Date: 20160815
  Serious: Yes (Death)
  Sender: FDA-Public Use
  Company Number: JP-SA-2016SA059326

PATIENT
  Age: 73 Year
  Sex: Male

DRUGS (6)
  1. POLARAMINE [Concomitant]
     Active Substance: DEXCHLORPHENIRAMINE MALEATE
     Indication: PREMEDICATION
     Dosage: EVERY 4 WEEKS
     Dates: start: 20150721, end: 20160311
  2. DECADRON [Suspect]
     Active Substance: DEXAMETHASONE
     Indication: HORMONE-REFRACTORY PROSTATE CANCER
     Route: 048
     Dates: start: 20150802, end: 20160318
  3. JEVTANA [Suspect]
     Active Substance: CABAZITAXEL
     Indication: HORMONE-REFRACTORY PROSTATE CANCER
     Dosage: EVERY 4 WEEKS
     Route: 042
     Dates: start: 20150721, end: 20160311
  4. G-LASTA [Concomitant]
     Active Substance: PEGFILGRASTIM
     Indication: PREMEDICATION
     Dosage: EVERY 4 WEEKS
     Dates: start: 20150721, end: 20160311
  5. PREDNISOLONE. [Concomitant]
     Active Substance: PREDNISOLONE
     Indication: HORMONE-REFRACTORY PROSTATE CANCER
     Dates: start: 20140911
  6. DECADRON [Concomitant]
     Active Substance: DEXAMETHASONE
     Indication: PREMEDICATION
     Dosage: EVERY 4 WEEKS
     Dates: start: 20150721, end: 20160311

REACTIONS (3)
  - Oxygen saturation decreased [Fatal]
  - Pneumonia [Fatal]
  - Respiratory distress [Fatal]

NARRATIVE: CASE EVENT DATE: 20160318
